FAERS Safety Report 10433289 (Version 4)
Quarter: 2014Q4

REPORT INFORMATION
  Report Type: Report from Study
  Country: CA (occurrence: CA)
  Receive Date: 20140905
  Receipt Date: 20141024
  Transmission Date: 20150528
  Serious: Yes (Death, Hospitalization, Other)
  Sender: FDA-Public Use
  Company Number: CA-ABBVIE-14K-028-1279182-00

PATIENT
  Age: 69 Year
  Sex: Female
  Weight: 27.24 kg

DRUGS (1)
  1. HUMIRA [Suspect]
     Active Substance: ADALIMUMAB
     Indication: CROHN^S DISEASE
     Route: 058
     Dates: start: 20130427, end: 201408

REACTIONS (3)
  - Cardiac disorder [Unknown]
  - Abdominal distension [Recovering/Resolving]
  - Aortic stenosis [Fatal]

NARRATIVE: CASE EVENT DATE: 201408
